FAERS Safety Report 9845508 (Version 1)
Quarter: 2014Q1

REPORT INFORMATION
  Report Type: Spontaneous
  Country: IL (occurrence: IL)
  Receive Date: 20140127
  Receipt Date: 20140127
  Transmission Date: 20141002
  Serious: Yes (Hospitalization)
  Sender: FDA-Public Use
  Company Number: IL-TEVA-458741ISR

PATIENT
  Age: 51 Year
  Sex: Male

DRUGS (1)
  1. DICLOFENAC [Suspect]
     Indication: BACK PAIN
     Dosage: 75MG
     Route: 030

REACTIONS (1)
  - Arteriospasm coronary [Recovered/Resolved]
